FAERS Safety Report 9060288 (Version 1)
Quarter: 2013Q1

REPORT INFORMATION
  Report Type: Spontaneous
  Country: US (occurrence: None)
  Receive Date: 20130207
  Receipt Date: 20130207
  Transmission Date: 20140127
  Serious: Yes (Disabling)
  Sender: FDA-Public Use
  Company Number: None

PATIENT
  Age: 72 Year
  Sex: Female
  Weight: 69.85 kg

DRUGS (1)
  1. LEVAQUIN [Suspect]
     Indication: INFECTION
     Dates: start: 20110317

REACTIONS (9)
  - Drug ineffective [None]
  - Incorrect drug administration duration [None]
  - Nausea [None]
  - Feeling abnormal [None]
  - Chills [None]
  - Blood pressure increased [None]
  - Dyspnoea [None]
  - Renal failure acute [None]
  - Renal failure chronic [None]
